FAERS Safety Report 5723830-2 (Version None)
Quarter: 2008Q2

REPORT INFORMATION
  Report Type: 
  Country: None (occurrence: None)
  Receive Date: 20080430
  Receipt Date: 20080422
  Transmission Date: 20081010
  Serious: Yes (Death, Hospitalization)
  Sender: FDA-Public Use
  Company Number: DE-ROCHE-560531

PATIENT
  Age: 68 Year
  Sex: Male
  Weight: 63 kg

DRUGS (9)
  1. TORSEMIDE [Suspect]
     Route: 065
     Dates: start: 20080411
  2. TEMODAL [Suspect]
     Indication: CHEMOTHERAPY
     Route: 065
     Dates: start: 20080327, end: 20080331
  3. NOVAMINSULFON [Suspect]
     Indication: PAIN
     Dosage: 20 DROPS IF REQUIRED
     Route: 065
  4. HYDROCHLOROTHIAZIDE [Suspect]
     Route: 065
  5. BISOPROLOL FUMARATE [Suspect]
     Indication: ATRIAL FIBRILLATION
     Route: 065
     Dates: start: 20080101
  6. LISINOPRIL [Suspect]
     Route: 065
     Dates: start: 20071101
  7. FORTECORTIN [Suspect]
     Indication: DRUG USE FOR UNKNOWN INDICATION
     Dosage: START DATE SINCE SURGERY
     Route: 065
  8. NEXIUM [Suspect]
     Indication: PROPHYLAXIS
     Dosage: OTHER INDICATION PREMEDICATION NOS
     Route: 065
  9. FLUCONAZOLE [Suspect]
     Indication: CANDIDIASIS
     Dosage: DRUG NAME DIFFUCAN
     Route: 065

REACTIONS (2)
  - CARDIAC DISORDER [None]
  - DYSPNOEA [None]
